FAERS Safety Report 12195425 (Version 4)
Quarter: 2016Q2

REPORT INFORMATION
  Report Type: Spontaneous
  Country: BR (occurrence: BR)
  Receive Date: 20160321
  Receipt Date: 20160523
  Transmission Date: 20160815
  Serious: Yes (Hospitalization)
  Sender: FDA-Public Use
  Company Number: BR-PFIZER INC-2016164102

PATIENT
  Sex: Female

DRUGS (5)
  1. GEODON [Suspect]
     Active Substance: ZIPRASIDONE HYDROCHLORIDE\ZIPRASIDONE MESYLATE
     Indication: SCHIZOPHRENIA
     Dosage: 200 MG (80MG IN THE MORNING PLUS 80MG + 40MG AT NIGHT) DAILY
     Dates: start: 2004
  2. OLANZAPINE. [Concomitant]
     Active Substance: OLANZAPINE
     Dosage: UNK
     Dates: start: 2014
  3. AAS INFANTIL [Concomitant]
     Active Substance: ASPIRIN
     Indication: ANTICOAGULANT THERAPY
     Dosage: UNK
     Dates: start: 2006
  4. HALDOL [Suspect]
     Active Substance: HALOPERIDOL
     Dosage: UNK
  5. N-ACETILCISTEINA [Concomitant]
     Indication: MEMORY IMPAIRMENT
     Dosage: 500 MG, UNK
     Dates: start: 2012

REACTIONS (2)
  - Condition aggravated [Unknown]
  - Schizophrenia [Unknown]
